FAERS Safety Report 7971654-8 (Version None)
Quarter: 2011Q4

REPORT INFORMATION
  Report Type: 
  Country: None (occurrence: None)
  Receive Date: 20111212
  Receipt Date: 20111201
  Transmission Date: 20120403
  Serious: Yes (Death, Other)
  Sender: FDA-Public Use
  Company Number: DE-TEVA-311602GER

PATIENT
  Age: 66 Year
  Sex: Male

DRUGS (7)
  1. DOXEPIN [Suspect]
     Dosage: 25 MILLIGRAM;
     Route: 048
     Dates: start: 20110128, end: 20110206
  2. NALOXONE [Suspect]
     Dosage: 1 DOSAGE FORMS; OXYCODONE HYDROCHLORIDE +NALOXONHYDROCHLORIDE
     Route: 048
     Dates: start: 20110128, end: 20110207
  3. DOXEPIN [Suspect]
     Dosage: 50 MILLIGRAM;
     Route: 048
     Dates: start: 20110207
  4. NOVALGIN [Concomitant]
     Route: 048
     Dates: start: 20110207
  5. EXFORGE [Concomitant]
     Dosage: AMLODIPIN + VALSARTAN
     Route: 048
     Dates: end: 20110207
  6. PANTOPRAZOLE SODIUM [Concomitant]
     Route: 048
  7. BISOPROLOL FUMARATE [Concomitant]
     Route: 048
     Dates: end: 20110207

REACTIONS (1)
  - MYOCARDIAL INFARCTION [None]
